FAERS Safety Report 7779957-7 (Version None)
Quarter: 2011Q3

REPORT INFORMATION
  Report Type: 
  Country: None (occurrence: None)
  Receive Date: 20110927
  Receipt Date: 20110916
  Transmission Date: 20111222
  Serious: Yes (Other)
  Sender: FDA-Public Use
  Company Number: US-JNJFOC-20110810403

PATIENT
  Sex: Female
  Weight: 99.79 kg

DRUGS (12)
  1. REMICADE [Suspect]
     Dosage: DOSE:500MG/250ML'S NORMAL SALINE INTRAVENOUS FLUIDS
     Route: 042
     Dates: start: 20110208
  2. HYDROCHLOROTHIAZIDE [Concomitant]
     Dosage: DOSE:25 (UNITS UNSPECIFIED)
     Route: 065
  3. REMICADE [Suspect]
     Dosage: DOSE:500MG/250ML'S NORMAL SALINE INTRAVENOUS FLUIDS
     Route: 042
     Dates: start: 20110407
  4. VIACTIV CALCIUM CHEWS [Concomitant]
     Route: 065
  5. MICROGESTIN 1.5/30 [Concomitant]
     Route: 065
  6. REMICADE [Suspect]
     Dosage: DOSE:500MG/250ML'S NORMAL SALINE INTRAVENOUS FLUIDS
     Route: 042
     Dates: start: 20110603
  7. MERCAPTOPURINE [Concomitant]
     Indication: COLITIS ULCERATIVE
     Route: 065
     Dates: start: 20010101
  8. QUESTRAN [Concomitant]
     Indication: DIARRHOEA
  9. PREDNISONE [Concomitant]
     Route: 065
  10. BIOTIN [Concomitant]
     Route: 065
  11. REMICADE [Suspect]
     Indication: COLITIS ULCERATIVE
     Route: 042
     Dates: start: 20010101
  12. REMICADE [Suspect]
     Dosage: DOSE:500MG/250ML'S NORMAL SALINE INTRAVENOUS FLUIDS
     Route: 042
     Dates: start: 20110726, end: 20110726

REACTIONS (3)
  - RENAL FAILURE [None]
  - METABOLIC ACIDOSIS [None]
  - DRUG SPECIFIC ANTIBODY PRESENT [None]
